FAERS Safety Report 23057863 (Version 1)
Quarter: 2023Q4

REPORT INFORMATION
  Report Type: Spontaneous
  Country: IT (occurrence: IT)
  Receive Date: 20231012
  Receipt Date: 20231012
  Transmission Date: 20240110
  Serious: Yes (Hospitalization)
  Sender: FDA-Public Use
  Company Number: IT-MINISAL02-947565

PATIENT
  Age: 90 Year
  Sex: Female

DRUGS (3)
  1. OLANZAPINE [Suspect]
     Active Substance: OLANZAPINE
     Indication: Product used for unknown indication
     Dosage: UNK,DOSAGE: 2.5 UNIT OF MEASUREMENT: MILLIGRAMS ADMINISTRATION FREQUENCY: TOTAL ROUTE OF ADMINISTRAT
     Route: 065
     Dates: start: 20230907, end: 20230907
  2. NORVASC [Concomitant]
     Active Substance: AMLODIPINE BESYLATE
     Indication: Product used for unknown indication
     Dosage: UNK
     Route: 065
  3. RAMIPRIL [Concomitant]
     Active Substance: RAMIPRIL
     Indication: Product used for unknown indication
     Dosage: UNK,DOSAGE: 5UNIT OF MEASUREMENT: MILLIGRAMS
     Route: 065

REACTIONS (3)
  - Dizziness [Recovered/Resolved]
  - Defaecation urgency [Recovered/Resolved]
  - Asthenia [Recovered/Resolved]

NARRATIVE: CASE EVENT DATE: 20230907
